FAERS Safety Report 15472532 (Version 1)
Quarter: 2018Q4

REPORT INFORMATION
  Report Type: Spontaneous
  Country: JP (occurrence: JP)
  Receive Date: 20181008
  Receipt Date: 20181008
  Transmission Date: 20190205
  Serious: Yes (Other)
  Sender: FDA-Public Use
  Company Number: JP-ROCHE-2148099

PATIENT
  Age: 29 Year
  Sex: Male
  Weight: 59 kg

DRUGS (14)
  1. ARTIST [Concomitant]
     Active Substance: CARVEDILOL
     Dosage: DOSAGE IS UNCERTAIN.
     Route: 065
  2. DAIPHEN [Concomitant]
     Active Substance: SULFAMETHOXAZOLE\TRIMETHOPRIM
     Dosage: DOSAGE IS UNCERTAIN.
     Route: 065
  3. REGPARA [Concomitant]
     Active Substance: CINACALCET HYDROCHLORIDE
     Dosage: DOSAGE IS UNCERTAIN.
     Route: 065
  4. ACTEMRA [Suspect]
     Active Substance: TOCILIZUMAB
     Route: 042
     Dates: start: 20171220
  5. NIFEDIPINE CR [Concomitant]
     Active Substance: NIFEDIPINE
     Dosage: DOSAGE IS UNCERTAIN.
     Route: 065
  6. FOSRENOL [Concomitant]
     Active Substance: LANTHANUM CARBONATE
     Dosage: DOSAGE IS UNCERTAIN.
     Route: 065
  7. ACTEMRA [Suspect]
     Active Substance: TOCILIZUMAB
     Dosage: DOSAGE IS UNCERTAIN.
     Route: 041
     Dates: start: 20170221, end: 20170503
  8. CALFINA [Concomitant]
     Active Substance: ALFACALCIDOL
     Dosage: DOSAGE IS UNCERTAIN.
     Route: 065
  9. PREDNISOLONE. [Concomitant]
     Active Substance: PREDNISOLONE
     Route: 065
  10. RASILEZ [Concomitant]
     Active Substance: ALISKIREN
     Dosage: DOSAGE IS UNCERTAIN.
     Route: 065
  11. ACTEMRA [Suspect]
     Active Substance: TOCILIZUMAB
     Indication: ABSCESS STERILE
     Dosage: DOSAGE IS UNCERTAIN.
     Route: 041
     Dates: start: 20140624
  12. ACTEMRA [Suspect]
     Active Substance: TOCILIZUMAB
     Route: 042
     Dates: start: 20170531, end: 20171122
  13. ACTEMRA [Suspect]
     Active Substance: TOCILIZUMAB
     Route: 042
     Dates: start: 20180311, end: 20180606
  14. CARDENALIN [Concomitant]
     Active Substance: DOXAZOSIN MESYLATE
     Dosage: DOSAGE IS UNCERTAIN.
     Route: 065

REACTIONS (3)
  - Off label use [Unknown]
  - C-reactive protein increased [Recovering/Resolving]
  - Product use in unapproved indication [Unknown]

NARRATIVE: CASE EVENT DATE: 20170417
